FAERS Safety Report 22073632 (Version 1)
Quarter: 2023Q1

REPORT INFORMATION
  Report Type: Report from Study
  Country: CN (occurrence: CN)
  Receive Date: 20230308
  Receipt Date: 20230308
  Transmission Date: 20230417
  Serious: Yes (Other)
  Sender: FDA-Public Use
  Company Number: CN-TAKEDA-2021TUS045789

PATIENT
  Age: 60 Year
  Sex: Female
  Weight: 60 kg

DRUGS (16)
  1. IXAZOMIB [Suspect]
     Active Substance: IXAZOMIB
     Indication: Plasma cell myeloma
     Dosage: 4 MILLIGRAM, 1/WEEK
     Route: 048
     Dates: start: 20210601
  2. ONDANSETRON HYDROCHLORIDE [Concomitant]
     Active Substance: ONDANSETRON HYDROCHLORIDE
     Indication: Gastritis prophylaxis
     Dosage: 4 MILLIGRAM, 1/WEEK
     Route: 048
     Dates: start: 20210601
  3. ONDANSETRON HYDROCHLORIDE [Concomitant]
     Active Substance: ONDANSETRON HYDROCHLORIDE
     Indication: Prophylaxis of nausea and vomiting
  4. DEXAMETHASONE [Concomitant]
     Active Substance: DEXAMETHASONE
     Indication: Plasma cell myeloma
     Dosage: 19.5 MILLIGRAM, 1/WEEK
     Route: 048
     Dates: start: 20201218
  5. LENALIDOMIDE [Concomitant]
     Active Substance: LENALIDOMIDE
     Indication: Plasma cell myeloma
     Dosage: 25 MILLIGRAM
     Route: 048
     Dates: start: 20210220
  6. VALACYCLOVIR HYDROCHLORIDE [Concomitant]
     Active Substance: VALACYCLOVIR HYDROCHLORIDE
     Indication: Prophylaxis
     Dosage: 0.15 GRAM, QD
     Route: 048
     Dates: start: 2021
  7. PREGABALIN [Concomitant]
     Active Substance: PREGABALIN
     Indication: Neuritis
     Dosage: 150 MILLIGRAM, BID
     Route: 048
     Dates: start: 20210220
  8. METHYLCOBALAMIN [Concomitant]
     Active Substance: METHYLCOBALAMIN
     Dosage: 0.5 MILLIGRAM, TID
     Route: 048
     Dates: start: 20201220
  9. ZHEN QI FU ZHENG [Concomitant]
     Dosage: 5 GRAM, BID
     Route: 048
     Dates: start: 2021, end: 2021
  10. ZHEN QI FU ZHENG [Concomitant]
     Dosage: 5 GRAM, BID
     Route: 048
     Dates: start: 20210611
  11. CALCIUM CARBONATE\CHOLECALCIFEROL [Concomitant]
     Active Substance: CALCIUM CARBONATE\CHOLECALCIFEROL
     Indication: Mineral supplementation
     Dosage: 600 MILLIGRAM, QD
     Route: 048
     Dates: start: 20201218
  12. RIVAROXABAN [Concomitant]
     Active Substance: RIVAROXABAN
     Indication: Anticoagulation drug level abnormal
     Dosage: 10 MILLIGRAM
     Route: 048
     Dates: start: 20210218
  13. ATORVASTATIN CALCIUM [Concomitant]
     Active Substance: ATORVASTATIN CALCIUM
     Indication: Hypolipidaemia
     Dosage: 20 MILLIGRAM
     Route: 048
     Dates: start: 202005
  14. Ammonium chloride and glycyrrhizae [Concomitant]
     Dosage: 10 MILLILITER, TID
     Route: 048
     Dates: start: 20210611, end: 20210612
  15. MOXIFLOXACIN HYDROCHLORIDE [Concomitant]
     Active Substance: MOXIFLOXACIN HYDROCHLORIDE
     Indication: Prophylaxis
     Dosage: 0.4 GRAM, QD
     Route: 048
     Dates: start: 20210611, end: 20210612
  16. GABAPENTIN [Concomitant]
     Active Substance: GABAPENTIN
     Indication: Neuritis
     Dosage: 0.3 GRAM, TID
     Route: 048
     Dates: start: 202105

REACTIONS (5)
  - COVID-19 pneumonia [Recovered/Resolved]
  - Eye inflammation [Recovered/Resolved]
  - Hyperhidrosis [Recovered/Resolved]
  - Pyrexia [Recovered/Resolved]
  - Off label use [Unknown]

NARRATIVE: CASE EVENT DATE: 20210608
